FAERS Safety Report 9445310 (Version 2)
Quarter: 2013Q3

REPORT INFORMATION
  Report Type: Spontaneous
  Country: US (occurrence: US)
  Receive Date: 20130807
  Receipt Date: 20130905
  Transmission Date: 20140515
  Serious: No
  Sender: FDA-Public Use
  Company Number: US-009507513-1308USA001984

PATIENT
  Age: 71 Year
  Sex: Female
  Weight: 62.13 kg

DRUGS (15)
  1. ZEGERID OTC CAPSULES [Suspect]
     Indication: CHILLS
     Dosage: 20 MG, BID
     Route: 048
     Dates: start: 20130717, end: 20130722
  2. ZEGERID OTC CAPSULES [Suspect]
     Indication: ABDOMINAL PAIN UPPER
     Dosage: 20 MG, QD
     Route: 048
     Dates: start: 2013
  3. ZEGERID OTC CAPSULES [Suspect]
     Indication: VOMITING
  4. ZEGERID OTC CAPSULES [Suspect]
     Indication: GASTROOESOPHAGEAL REFLUX DISEASE
  5. ZEGERID OTC CAPSULES [Suspect]
     Indication: MEDICAL OBSERVATION
  6. KRILL OIL [Concomitant]
     Indication: PRODUCT USED FOR UNKNOWN INDICATION
     Dosage: UNK, UNKNOWN
  7. VITAMIN B (UNSPECIFIED) [Concomitant]
     Indication: PRODUCT USED FOR UNKNOWN INDICATION
     Dosage: UNK, UNKNOWN
  8. ASCORBIC ACID [Concomitant]
     Indication: PRODUCT USED FOR UNKNOWN INDICATION
     Dosage: UNK, UNKNOWN
  9. PHYTONADIONE [Concomitant]
     Indication: PRODUCT USED FOR UNKNOWN INDICATION
     Dosage: UNK, UNKNOWN
  10. ZINC (UNSPECIFIED) [Concomitant]
     Indication: PRODUCT USED FOR UNKNOWN INDICATION
     Dosage: UNK, UNKNOWN
  11. METFORMIN [Concomitant]
     Indication: DIABETES MELLITUS
     Dosage: UNK, UNKNOWN
  12. LIPITOR [Concomitant]
     Indication: ILL-DEFINED DISORDER
     Dosage: UNK, UNKNOWN
  13. BENICAR [Concomitant]
     Indication: HYPERTENSION
     Dosage: UNK, UNKNOWN
  14. TYLENOL [Concomitant]
     Indication: ARTHRITIS
     Dosage: UNK, UNKNOWN
  15. ADVIL [Concomitant]
     Indication: ARTHRITIS
     Dosage: UNK, UNKNOWN

REACTIONS (3)
  - Dizziness [Unknown]
  - Feeling abnormal [Unknown]
  - Prescribed overdose [Unknown]
